FAERS Safety Report 13929427 (Version 2)
Quarter: 2018Q1

REPORT INFORMATION
  Report Type: Spontaneous
  Country: IE (occurrence: IE)
  Receive Date: 20170901
  Receipt Date: 20180323
  Transmission Date: 20180508
  Serious: Yes (Hospitalization, Other)
  Sender: FDA-Public Use
  Company Number: IE-BAYER-2017-162868

PATIENT
  Age: 59 Year
  Sex: Female

DRUGS (11)
  1. DEXKETOPROFEN [Suspect]
     Active Substance: DEXKETOPROFEN
  2. PARACETAMOL [Suspect]
     Active Substance: ACETAMINOPHEN
  3. NITROFURANTOIN. [Suspect]
     Active Substance: NITROFURANTOIN
     Indication: PROPHYLAXIS URINARY TRACT INFECTION
     Dosage: UNK
     Dates: start: 2011
  4. GLUCOSAMINE SULFATE [Suspect]
     Active Substance: GLUCOSAMINE SULFATE
  5. KETOPROFEN LYSINE [Suspect]
     Active Substance: KETOPROFEN LYSINE
  6. NAPROXEN SODIUM ({= 220 MG) [Suspect]
     Active Substance: NAPROXEN SODIUM
     Indication: ABDOMINAL PAIN
     Dosage: UNK
  7. FLURBIPROFEN. [Suspect]
     Active Substance: FLURBIPROFEN
  8. CELECOXIB. [Suspect]
     Active Substance: CELECOXIB
  9. SOLIFENACIN [Concomitant]
     Active Substance: SOLIFENACIN
  10. KETOROLAC TROMETHAMINE. [Suspect]
     Active Substance: KETOROLAC TROMETHAMINE
  11. IBUPROFEN [IBUPROFEN] [Suspect]
     Active Substance: IBUPROFEN

REACTIONS (5)
  - Portal hypertension [Recovering/Resolving]
  - Ascites [Recovering/Resolving]
  - Drug-induced liver injury [Recovering/Resolving]
  - Cholestasis [Recovering/Resolving]
  - Hepatic cirrhosis [Recovering/Resolving]
